FAERS Safety Report 16247220 (Version 1)
Quarter: 2019Q2

REPORT INFORMATION
  Report Type: Spontaneous
  Country: US (occurrence: US)
  Receive Date: 20190324
  Receipt Date: 20190324
  Transmission Date: 20190711
  Serious: No
  Sender: FDA-Public Use
  Company Number: None

PATIENT
  Age: 56 Year
  Sex: Female

DRUGS (1)
  1. HARVONI [Suspect]
     Active Substance: LEDIPASVIR\SOFOSBUVIR
     Route: 048
     Dates: start: 201902

REACTIONS (6)
  - Fatigue [None]
  - Headache [None]
  - Oesophageal ulcer [None]
  - Nausea [None]
  - Hiatus hernia [None]
  - Rash vesicular [None]

NARRATIVE: CASE EVENT DATE: 20190324
